FAERS Safety Report 6304166-8 (Version None)
Quarter: 2009Q3

REPORT INFORMATION
  Report Type: 
  Country: None (occurrence: None)
  Receive Date: 20090811
  Receipt Date: 20090731
  Transmission Date: 20100115
  Serious: No
  Sender: FDA-Public Use
  Company Number: US-BIOGENIDEC-2009BI003620

PATIENT
  Sex: Female

DRUGS (2)
  1. AVONEX [Suspect]
     Indication: MULTIPLE SCLEROSIS
     Route: 030
     Dates: start: 20050102, end: 20051201
  2. AVONEX [Suspect]
     Route: 030
     Dates: start: 20090101, end: 20090201

REACTIONS (4)
  - ASTHENIA [None]
  - DEPRESSED MOOD [None]
  - FIBROMYALGIA [None]
  - GASTROENTERITIS VIRAL [None]
